FAERS Safety Report 6788603-0 (Version None)
Quarter: 2010Q2

REPORT INFORMATION
  Report Type: 
  Country: None (occurrence: None)
  Receive Date: 20100623
  Receipt Date: 20080521
  Transmission Date: 20101027
  Serious: No
  Sender: FDA-Public Use
  Company Number: US-PFIZER INC-2008023431

PATIENT
  Sex: Female

DRUGS (2)
  1. XALATAN [Suspect]
     Indication: GLAUCOMA
     Dosage: 1/1 GTT
     Route: 031
  2. CELEBREX [Suspect]

REACTIONS (5)
  - BLEPHARITIS [None]
  - ERYTHEMA OF EYELID [None]
  - EYE ALLERGY [None]
  - HYPERSENSITIVITY [None]
  - UNEVALUABLE EVENT [None]
